FAERS Safety Report 7561330-8 (Version None)
Quarter: 2011Q2

REPORT INFORMATION
  Report Type: 
  Country: None (occurrence: None)
  Receive Date: 20110621
  Receipt Date: 20101220
  Transmission Date: 20111010
  Serious: No
  Sender: FDA-Public Use
  Company Number: US-ASTRAZENECA-2010SE60138

PATIENT
  Age: 81 Year
  Sex: Male
  Weight: 121.6 kg

DRUGS (9)
  1. FUROSEMIDE [Concomitant]
  2. POTASSIUM [Concomitant]
  3. ALBUTEROL SULFATE AUTOHALER [Concomitant]
     Indication: DYSPNOEA
  4. GABAPENTIN [Concomitant]
     Indication: PAIN
  5. PULMICORT [Suspect]
     Indication: DYSPNOEA
     Route: 055
     Dates: start: 20101001
  6. FORADIL [Concomitant]
     Indication: DYSPNOEA
  7. LISINOPRIL [Concomitant]
  8. NIFEDIPINE [Concomitant]
     Indication: HYPERTENSION
  9. HYDROXYZINE [Concomitant]

REACTIONS (1)
  - VISUAL IMPAIRMENT [None]
